FAERS Safety Report 5083189-3 (Version None)
Quarter: 2006Q3

REPORT INFORMATION
  Report Type: 
  Country: None (occurrence: None)
  Receive Date: 20060724
  Receipt Date: 20031121
  Transmission Date: 20061208
  Serious: Yes (Other)
  Sender: FDA-Public Use
  Company Number: DRON00206001354

PATIENT
  Age: 57 Year
  Sex: Female
  Weight: 69.6 kg

DRUGS (11)
  1. MARINOL [Suspect]
     Indication: MULTIPLE SCLEROSIS
     Dates: start: 20011001, end: 20020407
  2. MARINOL [Suspect]
     Indication: MUSCLE SPASTICITY
     Dates: start: 20011001, end: 20020407
  3. AUGMENTIN [Concomitant]
  4. BACLOFEN [Concomitant]
  5. BECONASE [Concomitant]
  6. CLIMESSE [Concomitant]
  7. DIAZEPAM [Concomitant]
  8. OXYBUTYNIN [Concomitant]
  9. PROPRANOLOL [Concomitant]
  10. TERBINAFINE CREAM [Concomitant]
  11. VITAMIN B-12 [Concomitant]

REACTIONS (1)
  - PLEURAL EFFUSION [None]
